FAERS Safety Report 4341178-8 (Version None)
Quarter: 2004Q2

REPORT INFORMATION
  Report Type: 
  Country: None (occurrence: None)
  Receive Date: 20040413
  Receipt Date: 20040405
  Transmission Date: 20050107
  Serious: Yes (Disabling)
  Sender: FDA-Public Use
  Company Number: 2004GB00808

PATIENT
  Age: 65 Year
  Sex: Male
  Weight: 80 kg

DRUGS (5)
  1. CRESTOR [Suspect]
     Indication: HYPERLIPIDAEMIA
     Dosage: 10 MG DAILY PO
     Route: 048
     Dates: start: 20040224, end: 20040228
  2. CLOPIDROGREL BISULFATE [Concomitant]
  3. PANTOPRAZOLE [Concomitant]
  4. FLOMAX [Concomitant]
  5. IRBESARTAN [Concomitant]

REACTIONS (6)
  - ABASIA [None]
  - ASTHENIA [None]
  - BEDRIDDEN [None]
  - DIFFICULTY IN WALKING [None]
  - DIZZINESS [None]
  - MYALGIA [None]
